FAERS Safety Report 9363394 (Version 1)
Quarter: 2013Q2

REPORT INFORMATION
  Report Type: Spontaneous
  Country: ES (occurrence: None)
  Receive Date: 20130620
  Receipt Date: 20130620
  Transmission Date: 20140414
  Serious: Yes (Death, Life-Threatening, Hospitalization, Other)
  Sender: FDA-Public Use
  Company Number: ES-ZYDUS-001463

PATIENT
  Age: 49 Year
  Sex: Female

DRUGS (2)
  1. SIMVASTATIN (SIMVASTATIN) [Suspect]
  2. COLCHICINE (COLCHICINE) [Suspect]

REACTIONS (9)
  - Diarrhoea [None]
  - Blood pressure systolic decreased [None]
  - Cyanosis [None]
  - Oxygen saturation decreased [None]
  - Coma scale abnormal [None]
  - Blood creatinine increased [None]
  - Blood creatine phosphokinase increased [None]
  - Aspartate aminotransferase increased [None]
  - Cardiac arrest [None]
